FAERS Safety Report 7428725-4 (Version None)
Quarter: 2011Q2

REPORT INFORMATION
  Report Type: 
  Country: None (occurrence: None)
  Receive Date: 20110421
  Receipt Date: 20110413
  Transmission Date: 20111010
  Serious: Yes (Hospitalization)
  Sender: FDA-Public Use
  Company Number: JP-B.I. PHARMACEUTICALS,INC./RIDGEFIELD-2011-BP-10651NB

PATIENT
  Age: 64 Year
  Sex: Male

DRUGS (14)
  1. ZOLOFT [Concomitant]
     Indication: DEPRESSION
     Dosage: 25 MG
     Route: 048
  2. TAMSULOSIN HCL [Concomitant]
     Indication: BENIGN PROSTATIC HYPERPLASIA
     Dosage: 0.2 MG
     Route: 048
  3. WARFARIN [Suspect]
     Route: 048
     Dates: start: 19960101, end: 20110411
  4. MYSLEE [Concomitant]
     Indication: INSOMNIA
     Dosage: 5 MG
     Route: 048
  5. DOXAZOSIN MESYLATE [Concomitant]
     Indication: HYPERTENSION
     Dosage: 4 MG
     Route: 048
  6. LONGES [Concomitant]
     Indication: HYPERTENSION
     Dosage: 10 MG
     Route: 048
  7. JUVELA [Concomitant]
     Dosage: 3 DF
     Route: 048
  8. REZALTAS [Concomitant]
     Indication: HYPERTENSION
     Dosage: 1 DF
     Route: 048
  9. GASTER [Concomitant]
     Indication: GASTRITIS
     Dosage: 20 MG
     Route: 048
  10. MUCOSTA [Concomitant]
     Indication: GASTRITIS
     Dosage: 300 MG
     Route: 048
  11. PRAZAXA [Suspect]
     Indication: ATRIAL FIBRILLATION
     Dosage: 220 MG
     Route: 048
     Dates: start: 20110411, end: 20110412
  12. NIVADIL [Concomitant]
     Indication: HYPERTENSION
     Dosage: 8 MG
     Route: 048
  13. VERAPAMIL HCL [Concomitant]
     Indication: ARRHYTHMIA
     Dosage: 360 MG
     Route: 048
  14. INSULIN [Concomitant]
     Indication: DIABETES MELLITUS
     Route: 058

REACTIONS (2)
  - CHEST PAIN [None]
  - PULMONARY ALVEOLAR HAEMORRHAGE [None]
